FAERS Safety Report 5750379-3 (Version None)
Quarter: 2008Q2

REPORT INFORMATION
  Report Type: 
  Country: None (occurrence: None)
  Receive Date: 20080528
  Receipt Date: 20080519
  Transmission Date: 20081010
  Serious: Yes (Hospitalization)
  Sender: FDA-Public Use
  Company Number: JP-JNJFOC-20080201703

PATIENT
  Sex: Female
  Weight: 58 kg

DRUGS (15)
  1. REMICADE [Suspect]
     Route: 042
  2. REMICADE [Suspect]
     Route: 042
  3. REMICADE [Suspect]
     Route: 042
  4. REMICADE [Suspect]
     Indication: RHEUMATOID ARTHRITIS
     Route: 042
  5. RHEUMATREX [Suspect]
     Indication: RHEUMATOID ARTHRITIS
     Route: 048
  6. PROGRAF [Suspect]
     Route: 048
  7. PROGRAF [Suspect]
     Indication: RHEUMATOID ARTHRITIS
     Route: 048
  8. ISONIAZID [Suspect]
     Indication: DISSEMINATED TUBERCULOSIS
     Route: 048
  9. RIFAMPICIN [Suspect]
     Indication: DISSEMINATED TUBERCULOSIS
     Route: 048
  10. ETHAMBUTOL HYDROCHLORIDE [Suspect]
     Route: 048
  11. ETHAMBUTOL HYDROCHLORIDE [Suspect]
     Indication: DISSEMINATED TUBERCULOSIS
     Route: 048
  12. PYRAZINAMIDE [Suspect]
     Indication: DISSEMINATED TUBERCULOSIS
     Route: 048
  13. CELECOX [Concomitant]
     Indication: RHEUMATOID ARTHRITIS
     Route: 048
  14. GASTER D [Concomitant]
     Indication: GASTRITIS
     Route: 048
  15. GASMOTIN [Concomitant]
     Indication: GASTRITIS
     Route: 048

REACTIONS (2)
  - DISSEMINATED TUBERCULOSIS [None]
  - LIVER DISORDER [None]
